FAERS Safety Report 5804053-5 (Version None)
Quarter: 2008Q3

REPORT INFORMATION
  Report Type: 
  Country: None (occurrence: None)
  Receive Date: 20080703
  Receipt Date: 20071214
  Transmission Date: 20090109
  Serious: Yes (Other)
  Sender: FDA-Public Use
  Company Number: WAES 0712USA06580

PATIENT

DRUGS (1)
  1. HYZAAR [Suspect]
     Dosage: PO
     Route: 048

REACTIONS (1)
  - PANCREATITIS [None]
